FAERS Safety Report 9153486 (Version 1)
Quarter: 2013Q1

REPORT INFORMATION
  Report Type: Spontaneous
  Country: SG (occurrence: None)
  Receive Date: 20130204
  Receipt Date: 20130204
  Transmission Date: 20140127
  Serious: Yes (Hospitalization)
  Sender: FDA-Public Use
  Company Number: FK201300344

PATIENT
  Age: 11 Year
  Sex: Female

DRUGS (3)
  1. GEMCITABINE [Suspect]
     Indication: BONE SARCOMA
  2. DOCETAXEL [Suspect]
  3. CO-TRIMOXAZOLE [Concomitant]

REACTIONS (4)
  - Toxic skin eruption [None]
  - Diarrhoea [None]
  - Febrile neutropenia [None]
  - Mouth ulceration [None]
